FAERS Safety Report 8975776 (Version 1)
Quarter: 2012Q4

REPORT INFORMATION
  Report Type: 
  Country: DE (occurrence: DE)
  Receive Date: 20121219
  Receipt Date: 20121219
  Transmission Date: 20130627
  Serious: Yes (Other)
  Sender: FDA-Public Use
  Company Number: DE-WATSON-2012-22162

PATIENT
  Age: 63 Year
  Sex: Female

DRUGS (1)
  1. GEMCITABINE [Suspect]
     Indication: BREAST CANCER METASTATIC
     Dosage: 1900 mg, IV drip
     Route: 042
     Dates: start: 20120417, end: 20120529

REACTIONS (2)
  - Anaemia haemolytic autoimmune [Recovering/Resolving]
  - Renal failure [Recovering/Resolving]
